FAERS Safety Report 6923291-1 (Version None)
Quarter: 2010Q3

REPORT INFORMATION
  Report Type: 
  Country: None (occurrence: None)
  Receive Date: 20100813
  Receipt Date: 20100804
  Transmission Date: 20110219
  Serious: Yes (Hospitalization)
  Sender: FDA-Public Use
  Company Number: US-JNJFOC-20100604465

PATIENT
  Age: 3 Year
  Sex: Male

DRUGS (2)
  1. CHILDREN'S MOTRIN [Suspect]
     Route: 048
  2. CHILDREN'S MOTRIN [Suspect]
     Indication: PYREXIA
     Dosage: 100 MG/5 ML
     Route: 048

REACTIONS (2)
  - KAWASAKI'S DISEASE [None]
  - PRODUCT QUALITY ISSUE [None]
